FAERS Safety Report 10163636 (Version 1)
Quarter: 2014Q2

REPORT INFORMATION
  Report Type: Spontaneous
  Country: ES (occurrence: GB)
  Receive Date: 20140509
  Receipt Date: 20140509
  Transmission Date: 20141212
  Serious: Yes (Other)
  Sender: FDA-Public Use
  Company Number: GB-FRI-1000067184

PATIENT
  Age: 83 Year
  Sex: Female
  Weight: 52.6 kg

DRUGS (5)
  1. ACLIDINIUM [Suspect]
     Indication: CHRONIC OBSTRUCTIVE PULMONARY DISEASE
     Route: 055
     Dates: start: 20140219
  2. CLOPIDOGREL [Concomitant]
  3. FUROSEMIDE [Concomitant]
  4. SALBUTAMOL [Concomitant]
  5. SERETIDE [Concomitant]

REACTIONS (2)
  - Confusional state [Recovered/Resolved]
  - Hallucination [Recovered/Resolved]
